FAERS Safety Report 8166809-6 (Version None)
Quarter: 2012Q1

REPORT INFORMATION
  Report Type: 
  Country: None (occurrence: None)
  Receive Date: 20120227
  Receipt Date: 20120215
  Transmission Date: 20120608
  Serious: Yes (Other)
  Sender: FDA-Public Use
  Company Number: AR-ROCHE-1041405

PATIENT
  Sex: Female

DRUGS (3)
  1. LUCENTIS [Suspect]
     Route: 050
     Dates: start: 20111219
  2. LUCENTIS [Suspect]
     Indication: EYE OEDEMA
     Route: 050
     Dates: start: 20111121
  3. LUCENTIS [Suspect]
     Route: 050
     Dates: start: 20120116

REACTIONS (3)
  - MUSCULOSKELETAL PAIN [None]
  - EYE HAEMORRHAGE [None]
  - SCLERAL DISCOLOURATION [None]
